FAERS Safety Report 7906757-7 (Version None)
Quarter: 2011Q4

REPORT INFORMATION
  Report Type: 
  Country: None (occurrence: None)
  Receive Date: 20111110
  Receipt Date: 20111026
  Transmission Date: 20120403
  Serious: Yes (Hospitalization)
  Sender: FDA-Public Use
  Company Number: NL-MEDIMMUNE-MEDI-0013832

PATIENT
  Sex: Female
  Weight: 4.57 kg

DRUGS (3)
  1. FUROSEMIDE [Concomitant]
     Dates: start: 20110101
  2. SYNAGIS [Suspect]
     Route: 030
     Dates: start: 20110901, end: 20111028
  3. SPIRONOLACTONE [Concomitant]
     Dates: start: 20110101

REACTIONS (5)
  - DYSPNOEA [None]
  - VIRAL INFECTION [None]
  - HYPOPHAGIA [None]
  - COUGH [None]
  - RESPIRATION ABNORMAL [None]
